FAERS Safety Report 6885408-7 (Version None)
Quarter: 2010Q3

REPORT INFORMATION
  Report Type: 
  Country: None (occurrence: None)
  Receive Date: 20100729
  Receipt Date: 20080204
  Transmission Date: 20110219
  Serious: No
  Sender: FDA-Public Use
  Company Number: US-PFIZER INC-2008011286

PATIENT
  Sex: Female
  Weight: 56.8 kg

DRUGS (1)
  1. CELEBREX [Suspect]
     Indication: LIGAMENT RUPTURE
     Dates: start: 20080204

REACTIONS (1)
  - PRURITUS [None]
